FAERS Safety Report 7445693-X (Version None)
Quarter: 2011Q2

REPORT INFORMATION
  Report Type: 
  Country: None (occurrence: None)
  Receive Date: 20110429
  Receipt Date: 20100426
  Transmission Date: 20111010
  Serious: No
  Sender: FDA-Public Use
  Company Number: US-ASTRAZENECA-2010SE18372

PATIENT
  Age: 46 Year
  Sex: Female
  Weight: 83 kg

DRUGS (3)
  1. NEXIUM [Suspect]
     Indication: ABDOMINAL PAIN UPPER
     Route: 048
     Dates: start: 20100420
  2. BACLOFEN [Concomitant]
  3. DIABETIC MEDICATION [Concomitant]

REACTIONS (6)
  - LIMB DISCOMFORT [None]
  - ABDOMINAL PAIN UPPER [None]
  - PAIN IN EXTREMITY [None]
  - YELLOW NAIL SYNDROME [None]
  - DRUG INEFFECTIVE [None]
  - EYE PAIN [None]
